FAERS Safety Report 8995738 (Version 1)
Quarter: 2013Q1

REPORT INFORMATION
  Report Type: Spontaneous
  Country: US (occurrence: US)
  Receive Date: 20130103
  Receipt Date: 20130103
  Transmission Date: 20140127
  Serious: No
  Sender: FDA-Public Use
  Company Number: US-ABBOTT-12P-163-0969679-00

PATIENT
  Age: 54 Year
  Sex: Female

DRUGS (3)
  1. SYNTHROID [Suspect]
     Indication: HORMONE REPLACEMENT THERAPY
  2. LIOTHYRONINE SODIUM [Suspect]
     Indication: HORMONE REPLACEMENT THERAPY
  3. XANAX [Suspect]
     Indication: ANXIETY

REACTIONS (5)
  - Oropharyngeal pain [Unknown]
  - Fatigue [Unknown]
  - Tremor [Unknown]
  - Dysphonia [Unknown]
  - Blood thyroid stimulating hormone decreased [Unknown]
